FAERS Safety Report 21989219 (Version 2)
Quarter: 2023Q2

REPORT INFORMATION
  Report Type: Spontaneous
  Country: US (occurrence: None)
  Receive Date: 20230214
  Receipt Date: 20230418
  Transmission Date: 20230721
  Serious: No
  Sender: FDA-Public Use
  Company Number: 2023A035749

PATIENT
  Sex: Male
  Weight: 55.3 kg

DRUGS (1)
  1. BREZTRI [Suspect]
     Active Substance: BUDESONIDE\FORMOTEROL\GLYCOPYRROLATE
     Indication: Chronic obstructive pulmonary disease
     Dosage: 160MCG/9MCG/4.8MCG, 2 PUFFS TWICE DAILY
     Route: 055

REACTIONS (7)
  - Secretion discharge [Unknown]
  - Illness [Unknown]
  - Feeding disorder [Unknown]
  - Weight decreased [Unknown]
  - Feeling abnormal [Unknown]
  - Device use issue [Unknown]
  - Device delivery system issue [Unknown]
